FAERS Safety Report 18249020 (Version 1)
Quarter: 2020Q3

REPORT INFORMATION
  Report Type: Spontaneous
  Country: US (occurrence: US)
  Receive Date: 20200909
  Receipt Date: 20200909
  Transmission Date: 20201103
  Serious: Yes (Hospitalization)
  Sender: FDA-Public Use
  Company Number: US-MYLANLABS-2020M1077269

PATIENT
  Age: 66 Year
  Sex: Female

DRUGS (9)
  1. SEVOFLURANE. [Concomitant]
     Active Substance: SEVOFLURANE
     Indication: MAINTENANCE OF ANAESTHESIA
     Route: 065
  2. HYDROCHLOROTHIAZIDE. [Concomitant]
     Active Substance: HYDROCHLOROTHIAZIDE
     Indication: HYPERTENSION
     Route: 065
  3. MIDAZOLAM. [Suspect]
     Active Substance: MIDAZOLAM
     Indication: INTRAOPERATIVE CARE
     Dosage: 2 MILLIGRAM(ADMINISTERED AT THE BEGINNING)
     Route: 065
  4. DEXMEDETOMIDINE. [Concomitant]
     Active Substance: DEXMEDETOMIDINE
     Indication: INTRAOPERATIVE CARE
     Dosage: 28 MICROGRAM(ADMINISTERED IN DIVIDED DOSES
     Route: 065
  5. SUGAMMADEX [Concomitant]
     Active Substance: SUGAMMADEX
     Indication: INTRAOPERATIVE CARE
     Route: 065
  6. ROCURONIUM [Concomitant]
     Active Substance: ROCURONIUM BROMIDE
     Indication: INTRAOPERATIVE CARE
     Route: 065
  7. SCOPOLAMINE [Suspect]
     Active Substance: SCOPOLAMINE
     Indication: PREOPERATIVE CARE
     Dosage: UNK
     Route: 062
  8. FENTANYL. [Suspect]
     Active Substance: FENTANYL
     Indication: INTRAOPERATIVE CARE
     Dosage: 300 MICROGRAM( IN DIVIDED DOSES WITH THE LAST DOSE GIVEN 45 MINUTES PRIOR TO EXTUBATION
     Route: 065
  9. PANTOPRAZOLE [Concomitant]
     Active Substance: PANTOPRAZOLE
     Indication: GASTROOESOPHAGEAL REFLUX DISEASE
     Route: 065

REACTIONS (1)
  - Anticholinergic syndrome [Recovering/Resolving]
